FAERS Safety Report 12924409 (Version 1)
Quarter: 2016Q4

REPORT INFORMATION
  Report Type: Spontaneous
  Country: US (occurrence: US)
  Receive Date: 20161109
  Receipt Date: 20161109
  Transmission Date: 20170207
  Serious: No
  Sender: FDA-Public Use
  Company Number: US-BAYER-2016-213443

PATIENT
  Age: 57 Year
  Sex: Female
  Weight: 111.11 kg

DRUGS (2)
  1. MIRALAX [Suspect]
     Active Substance: POLYETHYLENE GLYCOL 3350
     Indication: COLONOSCOPY
     Dosage: 1 DF, QD
     Route: 048
     Dates: start: 20161026
  2. MIRALAX [Suspect]
     Active Substance: POLYETHYLENE GLYCOL 3350
     Indication: LAXATIVE SUPPORTIVE CARE

REACTIONS (2)
  - Product use issue [Unknown]
  - Circumstance or information capable of leading to medication error [Unknown]
